FAERS Safety Report 18506044 (Version 1)
Quarter: 2020Q4

REPORT INFORMATION
  Report Type: Spontaneous
  Country: US (occurrence: US)
  Receive Date: 20201116
  Receipt Date: 20201116
  Transmission Date: 20210114
  Serious: Yes (Hospitalization, Other)
  Sender: FDA-Public Use
  Company Number: US-BAYER-2020-196632

PATIENT
  Age: 28 Year
  Sex: Female

DRUGS (3)
  1. BEYAZ [Suspect]
     Active Substance: DROSPIRENONE\ETHINYL ESTRADIOL\LEVOMEFOLATE CALCIUM
     Route: 048
  2. DROSPIRENONE + ETHINYLESTRADIOL + LEVOMEFOLATE CALCIUM [Suspect]
     Active Substance: DROSPIRENONE\ETHINYL ESTRADIOL\LEVOMEFOLATE CALCIUM
     Indication: CONTRACEPTION
     Dosage: UNK UNK, QD
     Route: 048
  3. CLARITINE [Concomitant]
     Active Substance: LORATADINE

REACTIONS (3)
  - Pulmonary embolism [Recovered/Resolved]
  - Thrombosis [Recovered/Resolved]
  - Abdominal pain upper [Recovered/Resolved]
